FAERS Safety Report 17104312 (Version 1)
Quarter: 2019Q4

REPORT INFORMATION
  Report Type: Spontaneous
  Country: US (occurrence: US)
  Receive Date: 20191203
  Receipt Date: 20191203
  Transmission Date: 20200122
  Serious: No
  Sender: FDA-Public Use
  Company Number: US-UCBSA-2017049011

PATIENT
  Age: 56 Year
  Sex: Female

DRUGS (1)
  1. VIMPAT [Suspect]
     Active Substance: LACOSAMIDE
     Indication: PRODUCT USED FOR UNKNOWN INDICATION
     Dosage: UNK

REACTIONS (6)
  - Erythema [Unknown]
  - Oral mucosal erythema [Unknown]
  - Mouth swelling [Unknown]
  - Swelling [Unknown]
  - Anorectal discomfort [Unknown]
  - Stomatitis [Unknown]
